FAERS Safety Report 8161404-7 (Version None)
Quarter: 2012Q1

REPORT INFORMATION
  Report Type: 
  Country: None (occurrence: None)
  Receive Date: 20120224
  Receipt Date: 20120213
  Transmission Date: 20120608
  Serious: Yes (Other)
  Sender: FDA-Public Use
  Company Number: US-SANOFI-AVENTIS-2012SA009619

PATIENT
  Age: 48 Year
  Sex: Female

DRUGS (4)
  1. CINNAMON OIL [Concomitant]
  2. LANTUS [Suspect]
     Indication: TYPE 2 DIABETES MELLITUS
     Dosage: DOSE:20 UNIT(S)
     Route: 041
     Dates: start: 20120207
  3. SOLOSTAR [Suspect]
     Indication: TYPE 2 DIABETES MELLITUS
     Dates: start: 20120207
  4. GLYBURIDE AND METFORMIN HYDROCHLORIDE [Suspect]
     Dates: start: 20100101

REACTIONS (4)
  - MALAISE [None]
  - INJECTION SITE PAIN [None]
  - CROHN'S DISEASE [None]
  - GASTROOESOPHAGEAL REFLUX DISEASE [None]
